FAERS Safety Report 16357590 (Version 2)
Quarter: 2019Q3

REPORT INFORMATION
  Report Type: Spontaneous
  Country: FR (occurrence: FR)
  Receive Date: 20190527
  Receipt Date: 20190726
  Transmission Date: 20191004
  Serious: Yes (Hospitalization, Disabling, Other)
  Sender: FDA-Public Use
  Company Number: FR-009507513-1104FRA00088

PATIENT
  Sex: Male

DRUGS (2)
  1. FINASTERIDE. [Suspect]
     Active Substance: FINASTERIDE
     Dosage: 1.25 MG, QD
     Route: 048
     Dates: start: 201103
  2. PROPECIA [Suspect]
     Active Substance: FINASTERIDE
     Indication: ANDROGENETIC ALOPECIA
     Dosage: 1 MG, QD
     Route: 048
     Dates: start: 20101126, end: 20110314

REACTIONS (13)
  - Irritable bowel syndrome [Unknown]
  - Tachycardia [Unknown]
  - Ejaculation disorder [Unknown]
  - Pollakiuria [Not Recovered/Not Resolved]
  - Erectile dysfunction [Not Recovered/Not Resolved]
  - Pudendal canal syndrome [Unknown]
  - Testicular pain [Recovered/Resolved]
  - Genital paraesthesia [Unknown]
  - Cystitis noninfective [Unknown]
  - Loss of libido [Not Recovered/Not Resolved]
  - Depression [Not Recovered/Not Resolved]
  - Palpitations [Unknown]
  - Candida infection [Unknown]

NARRATIVE: CASE EVENT DATE: 2011
